FAERS Safety Report 5210985-1 (Version None)
Quarter: 2006Q4

REPORT INFORMATION
  Report Type: 
  Country: None (occurrence: None)
  Receive Date: 20061130
  Receipt Date: 20060404
  Transmission Date: 20070319
  Serious: Yes (Disabling, Other)
  Sender: FDA-Public Use
  Company Number: WAES 0509USA03537

PATIENT
  Age: 63 Year
  Sex: Female
  Weight: 71.2147 kg

DRUGS (15)
  1. FOSAMAX [Suspect]
     Indication: OSTEOPOROSIS
     Dosage: 70 MG/WKY/PO
     Route: 048
     Dates: start: 20010706, end: 20050605
  2. ALTACE [Concomitant]
  3. CLARINEX [Concomitant]
  4. COREG [Concomitant]
  5. ASPIRIN [Concomitant]
  6. INSPIR [Concomitant]
  7. NITROGLYCERIN [Concomitant]
  8. PRAVACHOL [Concomitant]
  9. BUPROPION HYDROCHLORIDE [Concomitant]
  10. DIGOXIN [Concomitant]
  11. FOLIC ACID [Concomitant]
  12. HYDROCHLOROTHIAZIDE [Concomitant]
  13. METHOTREXATE [Concomitant]
  14. PREDNISONE [Concomitant]
  15. TRAZODONE HYDROCHLORIDE [Concomitant]

REACTIONS (2)
  - OSTEOMYELITIS [None]
  - OSTEONECROSIS [None]
